FAERS Safety Report 8413619-8 (Version None)
Quarter: 2012Q2

REPORT INFORMATION
  Report Type: 
  Country: None (occurrence: None)
  Receive Date: 20120605
  Receipt Date: 20120604
  Transmission Date: 20120825
  Serious: Yes (Hospitalization)
  Sender: FDA-Public Use
  Company Number: BR-BAYER-2012-028569

PATIENT
  Age: 30 Year
  Sex: Female

DRUGS (3)
  1. UNKNOWN [Concomitant]
  2. BETASERON [Suspect]
     Dosage: UNK
     Dates: start: 20120401
  3. BETASERON [Suspect]
     Indication: MULTIPLE SCLEROSIS
     Dosage: UNK
     Route: 058
     Dates: start: 20111201, end: 20120322

REACTIONS (1)
  - MULTIPLE SCLEROSIS [None]
